FAERS Safety Report 15018276 (Version 1)
Quarter: 2018Q2

REPORT INFORMATION
  Report Type: Report from Study
  Country: US (occurrence: US)
  Receive Date: 20180615
  Receipt Date: 20180615
  Transmission Date: 20180711
  Serious: Yes (Other)
  Sender: FDA-Public Use
  Company Number: US-MYLANLABS-2018M1041096

PATIENT

DRUGS (50)
  1. CLINDAMYCIN. [Suspect]
     Active Substance: CLINDAMYCIN
     Route: 065
     Dates: start: 201210
  2. SULPHAMETHOXAZOLE/TRIMETHOPRIM [Suspect]
     Active Substance: SULFAMETHOXAZOLE\TRIMETHOPRIM
     Indication: CLOSTRIDIUM DIFFICILE INFECTION
     Route: 065
     Dates: start: 201205
  3. CEFTRIAXONE. [Suspect]
     Active Substance: CEFTRIAXONE
     Route: 065
     Dates: start: 201210
  4. MEROPENEM. [Suspect]
     Active Substance: MEROPENEM
     Route: 065
     Dates: start: 201301
  5. CLINDAMYCIN. [Suspect]
     Active Substance: CLINDAMYCIN
     Route: 065
     Dates: start: 201208
  6. AMPICILLIN [Suspect]
     Active Substance: AMPICILLIN
     Indication: CLOSTRIDIUM DIFFICILE INFECTION
     Route: 065
  7. CEFTRIAXONE. [Suspect]
     Active Substance: CEFTRIAXONE
     Route: 065
     Dates: start: 201206
  8. CEFTRIAXONE. [Suspect]
     Active Substance: CEFTRIAXONE
     Route: 065
     Dates: start: 201208
  9. CEFTRIAXONE. [Suspect]
     Active Substance: CEFTRIAXONE
     Route: 065
     Dates: start: 201302
  10. MEROPENEM. [Suspect]
     Active Substance: MEROPENEM
     Indication: CLOSTRIDIUM DIFFICILE INFECTION
     Route: 065
     Dates: start: 201204
  11. GENTAMICIN. [Suspect]
     Active Substance: GENTAMICIN
     Route: 065
     Dates: start: 201212
  12. VANCOMYCIN [Suspect]
     Active Substance: VANCOMYCIN
     Route: 042
     Dates: start: 201207
  13. VANCOMYCIN [Suspect]
     Active Substance: VANCOMYCIN
     Route: 042
     Dates: start: 201302
  14. SULPHAMETHOXAZOLE/TRIMETHOPRIM [Suspect]
     Active Substance: SULFAMETHOXAZOLE\TRIMETHOPRIM
     Route: 065
     Dates: start: 201209
  15. CEFTRIAXONE. [Suspect]
     Active Substance: CEFTRIAXONE
     Route: 065
     Dates: start: 201204
  16. MEROPENEM. [Suspect]
     Active Substance: MEROPENEM
     Route: 065
     Dates: start: 201302
  17. GENTAMICIN. [Suspect]
     Active Substance: GENTAMICIN
     Indication: CLOSTRIDIUM DIFFICILE INFECTION
     Route: 065
     Dates: start: 201205
  18. VANCOMYCIN [Suspect]
     Active Substance: VANCOMYCIN
     Route: 042
     Dates: start: 201211
  19. VANCOMYCIN [Suspect]
     Active Substance: VANCOMYCIN
     Route: 042
     Dates: start: 201301
  20. SULPHAMETHOXAZOLE/TRIMETHOPRIM [Suspect]
     Active Substance: SULFAMETHOXAZOLE\TRIMETHOPRIM
     Route: 065
     Dates: start: 201302
  21. CIPROFLOXACIN. [Suspect]
     Active Substance: CIPROFLOXACIN
     Route: 065
     Dates: start: 201302
  22. RIFAMPICIN (RIFAMPIN) [Suspect]
     Active Substance: RIFAMPIN
     Route: 065
     Dates: start: 201212
  23. CEFAZOLIN [Suspect]
     Active Substance: CEFAZOLIN
     Indication: CLOSTRIDIUM DIFFICILE INFECTION
     Route: 065
     Dates: start: 201204
  24. MEROPENEM. [Suspect]
     Active Substance: MEROPENEM
     Route: 065
     Dates: start: 201207
  25. RIFAXIMIN. [Suspect]
     Active Substance: RIFAXIMIN
     Indication: CLOSTRIDIUM DIFFICILE INFECTION
     Route: 065
  26. GENTAMICIN. [Suspect]
     Active Substance: GENTAMICIN
     Route: 065
     Dates: start: 201301
  27. GENTAMICIN. [Suspect]
     Active Substance: GENTAMICIN
     Route: 065
     Dates: start: 201302
  28. MOXIFLOXACIN. [Concomitant]
     Active Substance: MOXIFLOXACIN
     Indication: CLOSTRIDIUM DIFFICILE INFECTION
     Route: 065
  29. VANCOMYCIN [Suspect]
     Active Substance: VANCOMYCIN
     Route: 042
     Dates: start: 201205
  30. VANCOMYCIN [Suspect]
     Active Substance: VANCOMYCIN
     Route: 042
     Dates: start: 201208
  31. SULPHAMETHOXAZOLE/TRIMETHOPRIM [Suspect]
     Active Substance: SULFAMETHOXAZOLE\TRIMETHOPRIM
     Route: 065
     Dates: start: 201207
  32. CEFTRIAXONE. [Suspect]
     Active Substance: CEFTRIAXONE
     Route: 065
     Dates: start: 201205
  33. CEFTRIAXONE. [Suspect]
     Active Substance: CEFTRIAXONE
     Route: 065
     Dates: start: 201301
  34. METRONIDAZOLE. [Suspect]
     Active Substance: METRONIDAZOLE
     Indication: CLOSTRIDIUM DIFFICILE INFECTION
     Route: 065
     Dates: start: 201203
  35. METRONIDAZOLE. [Suspect]
     Active Substance: METRONIDAZOLE
     Route: 065
     Dates: start: 201302
  36. CEFTRIAXONE. [Suspect]
     Active Substance: CEFTRIAXONE
     Indication: CLOSTRIDIUM DIFFICILE INFECTION
     Route: 065
     Dates: start: 201203
  37. VANCOMYCIN [Suspect]
     Active Substance: VANCOMYCIN
     Indication: CLOSTRIDIUM DIFFICILE INFECTION
     Route: 042
     Dates: start: 201203
  38. VANCOMYCIN [Suspect]
     Active Substance: VANCOMYCIN
     Route: 042
     Dates: start: 201204
  39. VANCOMYCIN [Suspect]
     Active Substance: VANCOMYCIN
     Route: 042
     Dates: start: 201206
  40. VANCOMYCIN [Suspect]
     Active Substance: VANCOMYCIN
     Route: 042
     Dates: start: 201210
  41. VANCOMYCIN [Suspect]
     Active Substance: VANCOMYCIN
     Route: 042
     Dates: start: 201212
  42. CLINDAMYCIN. [Suspect]
     Active Substance: CLINDAMYCIN
     Route: 065
     Dates: start: 201302
  43. CIPROFLOXACIN. [Suspect]
     Active Substance: CIPROFLOXACIN
     Indication: CLOSTRIDIUM DIFFICILE INFECTION
     Route: 065
     Dates: start: 201207
  44. RIFAMPICIN (RIFAMPIN) [Suspect]
     Active Substance: RIFAMPIN
     Indication: CLOSTRIDIUM DIFFICILE INFECTION
     Route: 065
     Dates: start: 201211
  45. CEFTRIAXONE. [Suspect]
     Active Substance: CEFTRIAXONE
     Route: 065
     Dates: start: 201211
  46. CEFTRIAXONE. [Suspect]
     Active Substance: CEFTRIAXONE
     Route: 065
     Dates: start: 201212
  47. METRONIDAZOLE. [Suspect]
     Active Substance: METRONIDAZOLE
     Route: 065
     Dates: start: 201207
  48. GENTAMICIN. [Suspect]
     Active Substance: GENTAMICIN
     Route: 065
     Dates: start: 201210
  49. CLINDAMYCIN. [Suspect]
     Active Substance: CLINDAMYCIN
     Indication: CLOSTRIDIUM DIFFICILE INFECTION
     Route: 065
     Dates: start: 201204
  50. CLINDAMYCIN. [Suspect]
     Active Substance: CLINDAMYCIN
     Route: 065
     Dates: start: 201209

REACTIONS (1)
  - Pathogen resistance [Unknown]
